FAERS Safety Report 21292063 (Version 1)
Quarter: 2022Q3

REPORT INFORMATION
  Report Type: Spontaneous
  Country: US (occurrence: None)
  Receive Date: 20220904
  Receipt Date: 20220904
  Transmission Date: 20221027
  Serious: No
  Sender: FDA-Public Use
  Company Number: 2022A290496

PATIENT
  Sex: Male

DRUGS (4)
  1. QTERN [Suspect]
     Active Substance: DAPAGLIFLOZIN\SAXAGLIPTIN HYDROCHLORIDE
     Indication: Type 2 diabetes mellitus
     Dosage: 10/5 ORALLY ONCE DAILY
     Route: 048
  2. FARXIGA [Concomitant]
     Active Substance: DAPAGLIFLOZIN PROPANEDIOL
     Indication: Type 2 diabetes mellitus
     Route: 048
  3. ONGLYZA [Concomitant]
     Active Substance: SAXAGLIPTIN HYDROCHLORIDE
     Indication: Type 2 diabetes mellitus
     Route: 048
  4. XIGDUO XR [Concomitant]
     Active Substance: DAPAGLIFLOZIN PROPANEDIOL\METFORMIN HYDROCHLORIDE
     Indication: Type 2 diabetes mellitus
     Dosage: UNKNOWN
     Route: 048

REACTIONS (4)
  - Glycosylated haemoglobin increased [Unknown]
  - Blood glucose fluctuation [Not Recovered/Not Resolved]
  - Arthralgia [Unknown]
  - Rash [Recovering/Resolving]
